FAERS Safety Report 20414404 (Version 3)
Quarter: 2022Q3

REPORT INFORMATION
  Report Type: Report from Study
  Country: DE (occurrence: DE)
  Receive Date: 20220202
  Receipt Date: 20220926
  Transmission Date: 20221027
  Serious: Yes (Other)
  Sender: FDA-Public Use
  Company Number: DE-ROCHE-2928536

PATIENT
  Age: 82 Year
  Sex: Female
  Weight: 71.9 kg

DRUGS (6)
  1. TRASTUZUMAB [Suspect]
     Active Substance: TRASTUZUMAB
     Indication: Breast cancer
     Dosage: 408 MILLIGRAM, (DATE OF LAST APPLICATION PRIOR EVENT: 26/MAR/2021)
     Route: 065
     Dates: start: 20210108, end: 20210129
  2. TRASTUZUMAB [Suspect]
     Active Substance: TRASTUZUMAB
     Dosage: 399 MILLIGRAM, (DATE OF LAST PRIOR EVENT 06/AUG/2021LAST DOSE OF PRIOR EVENT 409.2)
     Route: 065
     Dates: start: 20210715, end: 20220718
  3. TRASTUZUMAB [Suspect]
     Active Substance: TRASTUZUMAB
     Dosage: 441 MILLIGRAM/ DATE OF LAST APPLICATION PRIOR EVENT: 06/AUG/2021, 01/APR/2021LAST DOSE OF PRIOR EVEN
     Route: 065
     Dates: start: 20210129
  4. PACLITAXEL [Suspect]
     Active Substance: PACLITAXEL
     Indication: Breast cancer
     Dosage: 138 MILLIGRAM (DATE OF LAST APPLICATION PRIOR EVENT: 26/MAR/2021)
     Route: 065
     Dates: start: 20210108, end: 20210409
  5. PERTUZUMAB [Suspect]
     Active Substance: PERTUZUMAB
     Indication: Breast cancer
     Dosage: 420 MILLIGRAM (DATE OF LAST APPLICATION PRIOR EVENT: 26/MAR/2021, 30/APR/2021)
     Route: 065
     Dates: start: 20210108, end: 20210129
  6. PERTUZUMAB [Suspect]
     Active Substance: PERTUZUMAB
     Dosage: 420 MILLIGRAM/ DATE OF LAST APPLICATION PRIOR EVENT: 06/AUG/2021LAST OF APPLICATION PRIOR EVENT 01/A
     Route: 065
     Dates: start: 20210129, end: 20220718

REACTIONS (4)
  - Polyneuropathy [Not Recovered/Not Resolved]
  - Eye inflammation [Unknown]
  - Dysgeusia [Not Recovered/Not Resolved]
  - Oedema peripheral [Not Recovered/Not Resolved]

NARRATIVE: CASE EVENT DATE: 20210401
